FAERS Safety Report 10635707 (Version 1)
Quarter: 2014Q4

REPORT INFORMATION
  Report Type: Spontaneous
  Country: AU (occurrence: AU)
  Receive Date: 20141205
  Receipt Date: 20141205
  Transmission Date: 20150529
  Serious: Yes (Other)
  Sender: FDA-Public Use
  Company Number: AU-ASTRAZENECA-2014SE91962

PATIENT
  Age: 24676 Day
  Sex: Female
  Weight: 60 kg

DRUGS (1)
  1. CRESTOR [Suspect]
     Active Substance: ROSUVASTATIN CALCIUM
     Route: 048
     Dates: start: 20140814, end: 20141022

REACTIONS (2)
  - Osteoarthritis [Recovering/Resolving]
  - Dyshidrotic eczema [Recovering/Resolving]

NARRATIVE: CASE EVENT DATE: 20141020
